FAERS Safety Report 8214071-8 (Version None)
Quarter: 2012Q1

REPORT INFORMATION
  Report Type: 
  Country: None (occurrence: None)
  Receive Date: 20120314
  Receipt Date: 20120314
  Transmission Date: 20120608
  Serious: Yes (Hospitalization, Disabling)
  Sender: FDA-Public Use
  Company Number: None

PATIENT
  Age: 85 Year
  Sex: Male
  Weight: 69.4 kg

DRUGS (4)
  1. ENOXAPARIN [Suspect]
     Indication: SURGERY
     Dosage: 60 MG EVERY DAY SQ
     Route: 058
     Dates: start: 20120107, end: 20120121
  2. ENOXAPARIN [Suspect]
     Indication: INTESTINAL ISCHAEMIA
     Dosage: 60 MG EVERY DAY SQ
     Route: 058
     Dates: start: 20120107, end: 20120121
  3. WARFARIN SODIUM [Suspect]
     Indication: SURGERY
     Dosage: 3 MG EVERY DAY PO
     Route: 048
     Dates: start: 20110201, end: 20120125
  4. WARFARIN SODIUM [Suspect]
     Indication: INTESTINAL ISCHAEMIA
     Dosage: 3 MG EVERY DAY PO
     Route: 048
     Dates: start: 20110201, end: 20120125

REACTIONS (4)
  - PERONEAL NERVE PALSY [None]
  - INTERNATIONAL NORMALISED RATIO INCREASED [None]
  - HAEMATOMA [None]
  - NERVE COMPRESSION [None]
